FAERS Safety Report 9095357 (Version 1)
Quarter: 2013Q1

REPORT INFORMATION
  Report Type: Spontaneous
  Country: US (occurrence: None)
  Receive Date: 20130123
  Receipt Date: 20130123
  Transmission Date: 20140127
  Serious: Yes (Other)
  Sender: FDA-Public Use
  Company Number: 2013P1000613

PATIENT
  Age: 38 Year
  Sex: Male

DRUGS (1)
  1. INFUMORPH [Suspect]
     Indication: PAIN
     Route: 037

REACTIONS (6)
  - Dizziness [None]
  - Fatigue [None]
  - Euphoric mood [None]
  - Mental status changes [None]
  - Overdose [None]
  - Pump reservoir issue [None]
